FAERS Safety Report 20514338 (Version 1)
Quarter: 2022Q1

REPORT INFORMATION
  Report Type: Spontaneous
  Country: US (occurrence: US)
  Receive Date: 20220224
  Receipt Date: 20220224
  Transmission Date: 20220423
  Serious: No
  Sender: FDA-Public Use
  Company Number: US-VYERA PHARMACEUTICALS, LLC-2021VYE00007

PATIENT
  Age: 35 Year
  Sex: Male

DRUGS (2)
  1. DARAPRIM [Suspect]
     Active Substance: PYRIMETHAMINE
     Indication: Toxoplasmosis
     Dosage: 75 MG, 1X/DAY
     Route: 048
     Dates: start: 20210123
  2. ITRACONAZOLE [Suspect]
     Active Substance: ITRACONAZOLE

REACTIONS (2)
  - Nausea [Recovering/Resolving]
  - Off label use [Not Recovered/Not Resolved]

NARRATIVE: CASE EVENT DATE: 20210123
